FAERS Safety Report 21992326 (Version 1)
Quarter: 2023Q1

REPORT INFORMATION
  Report Type: Spontaneous
  Country: US (occurrence: US)
  Receive Date: 20230215
  Receipt Date: 20230215
  Transmission Date: 20230418
  Serious: Yes (Other)
  Sender: FDA-Public Use
  Company Number: US-JNJFOC-20230214026

PATIENT
  Age: 63 Year
  Sex: Female
  Weight: 127.12 kg

DRUGS (6)
  1. REMICADE [Suspect]
     Active Substance: INFLIXIMAB
     Indication: Psoriatic arthropathy
     Route: 041
     Dates: start: 20230107
  2. PREDNISONE [Suspect]
     Active Substance: PREDNISONE
     Indication: Pain
  3. LYRICA [Concomitant]
     Active Substance: PREGABALIN
     Indication: Pain
  4. TRAMADOL [Concomitant]
     Active Substance: TRAMADOL
     Indication: Pain
  5. CELEBREX [Concomitant]
     Active Substance: CELECOXIB
     Indication: Pain
  6. IBUPROFEN [Concomitant]
     Active Substance: IBUPROFEN
     Indication: Pain

REACTIONS (6)
  - Psoriatic arthropathy [Unknown]
  - Blood glucose increased [Unknown]
  - Fall [Unknown]
  - Ligament injury [Unknown]
  - Therapeutic product effect decreased [Unknown]
  - Off label use [Unknown]

NARRATIVE: CASE EVENT DATE: 20230101
